FAERS Safety Report 9678113 (Version 1)
Quarter: 2013Q4

REPORT INFORMATION
  Report Type: Spontaneous
  Country: US (occurrence: US)
  Receive Date: 20131108
  Receipt Date: 20131108
  Transmission Date: 20140711
  Serious: No
  Sender: FDA-Public Use
  Company Number: US-UPSHER-SMITH LABORATORIES, INC.-12003365

PATIENT
  Age: 84 Year
  Sex: Female

DRUGS (8)
  1. JANTOVEN [Suspect]
     Indication: HEART VALVE REPLACEMENT
     Dosage: AS DIRECTED, QD
     Route: 048
     Dates: start: 201206
  2. JANTOVEN [Suspect]
     Indication: HEART VALVE REPLACEMENT
     Dosage: AS DIRECTED, QD
     Route: 048
     Dates: start: 201206
  3. SEROQUEL                           /01270901/ [Concomitant]
     Dosage: UNK
  4. SPIRONOLACTONE [Concomitant]
     Indication: ANXIETY
     Dosage: UNK
  5. KEPPRA [Concomitant]
     Dosage: UNK
  6. TOPROL XL [Concomitant]
     Indication: HYPERTENSION
     Dosage: UNK
  7. DILANTIN                           /00017401/ [Concomitant]
     Indication: CONVULSION
     Dosage: UNK
  8. TEMAZEPAM [Concomitant]
     Indication: INSOMNIA
     Dosage: UNK

REACTIONS (1)
  - International normalised ratio fluctuation [Not Recovered/Not Resolved]
